FAERS Safety Report 19919804 (Version 1)
Quarter: 2021Q4

REPORT INFORMATION
  Report Type: Spontaneous
  Country: PT (occurrence: PT)
  Receive Date: 20211005
  Receipt Date: 20211005
  Transmission Date: 20220304
  Serious: Yes (Other)
  Sender: FDA-Public Use
  Company Number: PT-MYLANLABS-2021M1069501

PATIENT
  Age: 63 Year
  Sex: Male

DRUGS (4)
  1. VERAPAMIL [Suspect]
     Active Substance: VERAPAMIL HYDROCHLORIDE
     Indication: Cluster headache
     Dosage: UNK
     Route: 065
  2. TOPIRAMATE [Suspect]
     Active Substance: TOPIRAMATE
     Indication: Cluster headache
     Dosage: UNK
     Route: 065
  3. LITHIUM [Suspect]
     Active Substance: LITHIUM
     Indication: Cluster headache
     Dosage: UNK
     Route: 065
  4. MELATONIN [Suspect]
     Active Substance: MELATONIN
     Indication: Cluster headache
     Dosage: UNK
     Route: 065

REACTIONS (1)
  - Drug ineffective [Unknown]
